FAERS Safety Report 5268439-2 (Version None)
Quarter: 2007Q1

REPORT INFORMATION
  Report Type: 
  Country: None (occurrence: None)
  Receive Date: 20070319
  Receipt Date: 20070309
  Transmission Date: 20070707
  Serious: Yes (Other)
  Sender: FDA-Public Use
  Company Number: BE-GLAXOSMITHKLINE-B0462210A

PATIENT
  Sex: Male

DRUGS (5)
  1. AVANDIA [Suspect]
     Dosage: 8MG PER DAY
     Dates: start: 20030301
  2. METFORMIN [Concomitant]
     Dosage: 750MG TWICE PER DAY
  3. ASPIRIN [Concomitant]
  4. LIPITOR [Concomitant]
  5. VIAGRA [Concomitant]

REACTIONS (1)
  - VITREOUS HAEMORRHAGE [None]
